FAERS Safety Report 8086361-3 (Version None)
Quarter: 2012Q1

REPORT INFORMATION
  Report Type: 
  Country: None (occurrence: None)
  Receive Date: 20120128
  Receipt Date: 20110426
  Transmission Date: 20120608
  Serious: No
  Sender: FDA-Public Use
  Company Number: US-ABBOTT-11P-163-0721951-00

PATIENT
  Age: 44 Year
  Sex: Female

DRUGS (4)
  1. SIMVASTATIN [Concomitant]
     Indication: PRODUCT USED FOR UNKNOWN INDICATION
  2. NORVASC [Concomitant]
     Indication: PRODUCT USED FOR UNKNOWN INDICATION
  3. LISINOPRIL [Concomitant]
     Indication: PRODUCT USED FOR UNKNOWN INDICATION
  4. HUMIRA [Suspect]
     Indication: PSORIASIS
     Dates: start: 20110321

REACTIONS (7)
  - NASOPHARYNGITIS [None]
  - SINUS HEADACHE [None]
  - MALAISE [None]
  - COUGH [None]
  - RASH MACULO-PAPULAR [None]
  - NASAL CONGESTION [None]
  - RASH PRURITIC [None]
